FAERS Safety Report 6619354-0 (Version None)
Quarter: 2010Q1

REPORT INFORMATION
  Report Type: 
  Country: None (occurrence: None)
  Receive Date: 20100308
  Receipt Date: 20090318
  Transmission Date: 20100710
  Serious: No
  Sender: FDA-Public Use
  Company Number: US-TYCO HEALTHCARE/MALLINCKRODT-T200900697

PATIENT
  Age: 70 Year
  Sex: Female

DRUGS (2)
  1. TEMAZEPAM [Suspect]
     Indication: INSOMNIA
     Dosage: 15 MG, AT NIGHT AS NEEDED
     Dates: start: 20081201, end: 20090301
  2. TEMAZEPAM [Suspect]
     Dosage: 22.5 MG, UNK
     Dates: start: 20090314

REACTIONS (2)
  - ABNORMAL SLEEP-RELATED EVENT [None]
  - DRUG EFFECT DECREASED [None]
